FAERS Safety Report 22121635 (Version 1)
Quarter: 2023Q1

REPORT INFORMATION
  Report Type: Spontaneous
  Country: US (occurrence: None)
  Receive Date: 20230321
  Receipt Date: 20230321
  Transmission Date: 20230418
  Serious: Yes (Hospitalization)
  Sender: FDA-Public Use
  Company Number: None

PATIENT
  Age: 50 Year
  Sex: Female
  Weight: 72.3 kg

DRUGS (1)
  1. OXCARBAZEPINE [Suspect]
     Active Substance: OXCARBAZEPINE
     Indication: Bipolar disorder
     Dosage: FREQUENCY : TWICE A DAY;?
     Route: 048
     Dates: end: 20221026

REACTIONS (7)
  - Hyponatraemia [None]
  - Fall [None]
  - Status epilepticus [None]
  - Hypoxia [None]
  - Urinary tract infection [None]
  - Drug withdrawal convulsions [None]
  - Catatonia [None]

NARRATIVE: CASE EVENT DATE: 20221029
